FAERS Safety Report 19143860 (Version 1)
Quarter: 2021Q2

REPORT INFORMATION
  Report Type: Report from Study
  Country: IT (occurrence: IT)
  Receive Date: 20210416
  Receipt Date: 20210416
  Transmission Date: 20210717
  Serious: Yes (Other)
  Sender: FDA-Public Use
  Company Number: IT-TEVA-2021-IT-1900817

PATIENT
  Age: 44 Year
  Sex: Male

DRUGS (5)
  1. ONDANSETRON HYDROCHLORIDE. [Concomitant]
     Active Substance: ONDANSETRON HYDROCHLORIDE
     Indication: VOMITING
  2. FLUOROURACILE HIKMA [Suspect]
     Active Substance: FLUOROURACIL
     Indication: COLON CANCER
     Dates: start: 20210301
  3. OXALIPLATINO TEVA [Suspect]
     Active Substance: OXALIPLATIN
     Indication: COLON CANCER
     Dates: start: 20210301
  4. CALCIUM LEVOFOLINATE [Concomitant]
     Active Substance: LEVOLEUCOVORIN CALCIUM
     Indication: PROPHYLAXIS
     Dates: start: 20210301
  5. DEXAMETHASONE. [Concomitant]
     Active Substance: DEXAMETHASONE
     Indication: ANTIINFLAMMATORY THERAPY

REACTIONS (7)
  - Rhinorrhoea [Recovering/Resolving]
  - Asthenia [Recovering/Resolving]
  - Dysgeusia [Recovering/Resolving]
  - Abdominal distension [Recovering/Resolving]
  - Neuropathy peripheral [Recovering/Resolving]
  - Dermatitis acneiform [Recovering/Resolving]
  - Gingivitis [Recovering/Resolving]

NARRATIVE: CASE EVENT DATE: 20210301
